FAERS Safety Report 23744296 (Version 3)
Quarter: 2024Q2

REPORT INFORMATION
  Report Type: Spontaneous
  Country: US (occurrence: US)
  Receive Date: 20240415
  Receipt Date: 20240507
  Transmission Date: 20240716
  Serious: Yes (Hospitalization)
  Sender: FDA-Public Use
  Company Number: US-PFIZER INC-202400085165

PATIENT
  Age: 37 Year
  Sex: Female
  Weight: 54.422 kg

DRUGS (4)
  1. VELSIPITY [Suspect]
     Active Substance: ETRASIMOD ARGININE
     Indication: Proctitis ulcerative
     Dosage: 2 MG, 1X/DAY IN THE MORNING
     Route: 048
     Dates: start: 20240404, end: 20240404
  2. VITAMIN D3 [Concomitant]
     Active Substance: CHOLECALCIFEROL
     Indication: Vitamin D deficiency
     Dosage: UNK UNK, 1X/DAY
  3. VITAMIN B12 [Concomitant]
     Active Substance: CYANOCOBALAMIN
     Indication: Vitamin B12 deficiency
     Dosage: UNK, 1X/DAY
  4. COLAZAL [Concomitant]
     Active Substance: BALSALAZIDE DISODIUM
     Dosage: 3 CAP, 3X/DAY

REACTIONS (2)
  - Tachycardia [Unknown]
  - Mitral valve prolapse [Unknown]

NARRATIVE: CASE EVENT DATE: 20240404
